FAERS Safety Report 4281855-0 (Version None)
Quarter: 2004Q1

REPORT INFORMATION
  Report Type: 
  Country: None (occurrence: None)
  Receive Date: 20040129
  Receipt Date: 20040116
  Transmission Date: 20041129
  Serious: Yes (Hospitalization)
  Sender: FDA-Public Use
  Company Number: WAES 0401CHE00020

PATIENT
  Age: 50 Year
  Sex: Female

DRUGS (3)
  1. FOSAMAX [Suspect]
     Indication: OSTEOPOROSIS
     Route: 048
     Dates: start: 20030101, end: 20030101
  2. CALCIUM (UNSPECIFIED) [Concomitant]
     Indication: OSTEOPOROSIS
     Route: 048
  3. ESTRADIOL AND ESTRIOL AND NORETHINDRONE ACETATE [Concomitant]
     Indication: OSTEOPOROSIS
     Route: 048

REACTIONS (3)
  - HEPATIC NECROSIS [None]
  - HEPATITIS E [None]
  - PHAGOCYTOSIS [None]
